FAERS Safety Report 23173498 (Version 1)
Quarter: 2023Q4

REPORT INFORMATION
  Report Type: Report from Study
  Country: AR (occurrence: AR)
  Receive Date: 20231111
  Receipt Date: 20231111
  Transmission Date: 20240109
  Serious: Yes (Other)
  Sender: FDA-Public Use
  Company Number: AR-ABBVIE-5490072

PATIENT
  Age: 48 Year
  Sex: Female

DRUGS (1)
  1. RINVOQ [Suspect]
     Active Substance: UPADACITINIB
     Indication: Ankylosing spondylitis
     Dosage: FORM STRENGTH: 15 MILLIGRAM, LAST ADMIN DATE: 2023
     Route: 048
     Dates: start: 20230616

REACTIONS (3)
  - Ovarian cyst [Unknown]
  - Ovarian abscess [Unknown]
  - Bladder perforation [Unknown]

NARRATIVE: CASE EVENT DATE: 20231108
